FAERS Safety Report 19572996 (Version 2)
Quarter: 2021Q4

REPORT INFORMATION
  Report Type: Spontaneous
  Country: GB (occurrence: GB)
  Receive Date: 20210716
  Receipt Date: 20211005
  Transmission Date: 20220303
  Serious: Yes (Hospitalization, Other)
  Sender: FDA-Public Use
  Company Number: GB-ROCHE-2190583

PATIENT
  Age: 72 Year
  Sex: Female

DRUGS (60)
  1. DOCETAXEL [Suspect]
     Active Substance: DOCETAXEL
     Indication: HER2 positive breast cancer
     Dosage: 92 MG, Q3W
     Route: 042
     Dates: start: 20150514, end: 20150715
  2. DOCETAXEL [Suspect]
     Active Substance: DOCETAXEL
     Dosage: 86 MG, Q3W
     Route: 042
     Dates: start: 20150828, end: 20150918
  3. EXEMESTANE [Suspect]
     Active Substance: EXEMESTANE
     Indication: HER2 positive breast cancer
     Dosage: 25 MG, QD
     Route: 048
     Dates: start: 20151013, end: 201604
  4. TRASTUZUMAB [Suspect]
     Active Substance: TRASTUZUMAB
     Dosage: 300 MG, Q3W
     Route: 042
     Dates: start: 20160108, end: 20160405
  5. TRASTUZUMAB [Suspect]
     Active Substance: TRASTUZUMAB
     Dosage: 275 MG, Q3W
     Route: 042
     Dates: start: 20150918, end: 20151211
  6. TRASTUZUMAB [Suspect]
     Active Substance: TRASTUZUMAB
     Dosage: 300 MG, Q3W
     Route: 042
     Dates: start: 20150603, end: 20150828
  7. TRASTUZUMAB [Suspect]
     Active Substance: TRASTUZUMAB
     Dosage: 400 MG, Q3W
     Route: 041
     Dates: start: 20150513, end: 20150513
  8. TRASTUZUMAB [Suspect]
     Active Substance: TRASTUZUMAB
     Dosage: 300 UNK
     Route: 042
  9. PERTUZUMAB [Suspect]
     Active Substance: PERTUZUMAB
     Indication: HER2 positive breast cancer
     Dosage: 420 MG, Q3W
     Route: 042
     Dates: start: 20150603, end: 20150807
  10. NERATINIB [Suspect]
     Active Substance: NERATINIB
     Indication: HER2 positive breast cancer
     Dosage: 240 MG, QD
     Route: 048
     Dates: start: 20181025, end: 201811
  11. ADO-TRASTUZUMAB EMTANSINE [Suspect]
     Active Substance: ADO-TRASTUZUMAB EMTANSINE
     Indication: HER2 positive breast cancer
     Dosage: 160 MG, Q3W
     Route: 042
     Dates: start: 20170510, end: 20180808
  12. ADO-TRASTUZUMAB EMTANSINE [Suspect]
     Active Substance: ADO-TRASTUZUMAB EMTANSINE
     Dosage: 184 MG, Q3W
     Route: 042
     Dates: start: 20160426, end: 20160720
  13. ADO-TRASTUZUMAB EMTANSINE [Suspect]
     Active Substance: ADO-TRASTUZUMAB EMTANSINE
     Dosage: 148 MG, Q3W
     Route: 042
     Dates: start: 20160810, end: 20170419
  14. BUDESONIDE [Concomitant]
     Active Substance: BUDESONIDE
     Dosage: 9 MG
     Route: 048
     Dates: start: 20181025, end: 20181114
  15. CALAMINE LOTION [Concomitant]
     Active Substance: CALAMINE LOTION
     Indication: Dry skin
     Dosage: UNK UNK, PRN
     Route: 061
     Dates: start: 201508, end: 201601
  16. CETIRIZINE [Concomitant]
     Active Substance: CETIRIZINE HYDROCHLORIDE
     Dosage: 10 MG, QD
     Route: 065
     Dates: start: 20150805, end: 20150807
  17. CETIRIZINE [Concomitant]
     Active Substance: CETIRIZINE HYDROCHLORIDE
     Dosage: 10 MG
     Route: 048
     Dates: end: 20190406
  18. CETIRIZINE [Concomitant]
     Active Substance: CETIRIZINE HYDROCHLORIDE
     Dosage: UNK UNK, QD
     Route: 048
     Dates: start: 20150825, end: 20150827
  19. CETIRIZINE [Concomitant]
     Active Substance: CETIRIZINE HYDROCHLORIDE
     Dosage: 10 MG, QD
     Route: 048
     Dates: start: 20150805, end: 20150807
  20. CETIRIZINE [Concomitant]
     Active Substance: CETIRIZINE HYDROCHLORIDE
     Dosage: 10 MG, QD
     Route: 048
     Dates: start: 20150805, end: 20190406
  21. CHLORPHENIRAMINE MALEATE [Concomitant]
     Active Substance: CHLORPHENIRAMINE MALEATE
     Indication: Pruritus
     Dosage: 10 MG
     Route: 042
     Dates: start: 20150807, end: 20150807
  22. CLAVULANIC ACID [Concomitant]
     Active Substance: CLAVULANIC ACID
     Dosage: 125 MG, QD
     Route: 048
     Dates: start: 20150804, end: 20150810
  23. AMOXICILLIN\CLAVULANATE POTASSIUM [Concomitant]
     Active Substance: AMOXICILLIN\CLAVULANATE POTASSIUM
     Dosage: 625 MG, QD
     Route: 048
     Dates: start: 20150804, end: 20150810
  24. AMOXICILLIN\CLAVULANATE POTASSIUM [Concomitant]
     Active Substance: AMOXICILLIN\CLAVULANATE POTASSIUM
     Dosage: 1875 MG, QD
     Route: 048
     Dates: start: 20150804, end: 20150810
  25. AMOXICILLIN\CLAVULANATE POTASSIUM [Concomitant]
     Active Substance: AMOXICILLIN\CLAVULANATE POTASSIUM
     Dosage: 625 UNK
     Route: 042
     Dates: start: 20180923, end: 20180930
  26. AMOXICILLIN\CLAVULANATE POTASSIUM [Concomitant]
     Active Substance: AMOXICILLIN\CLAVULANATE POTASSIUM
     Dosage: 625 MG
     Route: 042
     Dates: start: 20180923, end: 20180930
  27. CYCLIZINE [Concomitant]
     Active Substance: CYCLIZINE
     Dosage: 50 MG
     Route: 058
     Dates: start: 201901, end: 20190406
  28. DEXAMETHASONE [Concomitant]
     Active Substance: DEXAMETHASONE
     Dosage: 2 MG, QD
     Route: 048
     Dates: start: 20150803, end: 20150805
  29. DEXAMETHASONE [Concomitant]
     Active Substance: DEXAMETHASONE
     Dosage: 2 UNK
     Route: 048
     Dates: start: 20181002, end: 20181212
  30. DEXAMETHASONE [Concomitant]
     Active Substance: DEXAMETHASONE
     Dosage: 5 MG, QD
     Route: 047
     Dates: start: 20150714, end: 20150905
  31. DOMPERIDONE [Concomitant]
     Active Substance: DOMPERIDONE
     Dosage: 10 MG, TID
     Route: 048
     Dates: start: 20150803, end: 20150805
  32. DOMPERIDONE [Concomitant]
     Active Substance: DOMPERIDONE
     Dosage: 10 MG, QD
     Route: 048
     Dates: start: 20150803, end: 20150805
  33. DOMPERIDONE [Concomitant]
     Active Substance: DOMPERIDONE
     Dosage: 30 MG, QD
     Route: 048
     Dates: start: 20150803
  34. GLYCOPYRROLATE [Concomitant]
     Active Substance: GLYCOPYRROLATE
     Dosage: 200 UG
     Route: 058
     Dates: start: 201901, end: 20190406
  35. HYDROCORTISONE [Concomitant]
     Active Substance: HYDROCORTISONE
     Indication: Pruritus
     Dosage: 100 MG
     Route: 042
     Dates: start: 20150807, end: 20150807
  36. HYPROMELLOSES [Concomitant]
     Active Substance: HYPROMELLOSES
     Indication: Lacrimation increased
     Dosage: UNK UNK, TID
     Route: 047
     Dates: end: 20160401
  37. HYPROMELLOSES [Concomitant]
     Active Substance: HYPROMELLOSES
     Dosage: UNK, QD (3 OT, QD )
     Route: 047
     Dates: end: 20160401
  38. LANSOPRAZOLE [Concomitant]
     Active Substance: LANSOPRAZOLE
     Dosage: 30 MG, QD
     Route: 048
     Dates: start: 20181002, end: 201901
  39. LOPERAMIDE [Concomitant]
     Active Substance: LOPERAMIDE
     Dosage: 2 MG
     Route: 048
     Dates: start: 20181025, end: 20190406
  40. LORAZEPAM [Concomitant]
     Active Substance: LORAZEPAM
     Indication: Panic attack
     Dosage: 0.5 MG
     Route: 048
     Dates: start: 20160830, end: 20190406
  41. LORAZEPAM [Concomitant]
     Active Substance: LORAZEPAM
     Dosage: 2 MG
     Route: 042
     Dates: start: 20180917, end: 20180918
  42. LORAZEPAM [Concomitant]
     Active Substance: LORAZEPAM
     Indication: Insomnia
  43. MIDAZOLAM [Concomitant]
     Active Substance: MIDAZOLAM
     Dosage: 2.5 MG
     Route: 058
     Dates: start: 201901, end: 20190406
  44. OMEPRAZOLE [Concomitant]
     Active Substance: OMEPRAZOLE
     Indication: Product used for unknown indication
     Dosage: 20 MG
     Route: 048
     Dates: start: 201901, end: 20190406
  45. OXYCODONE [Concomitant]
     Active Substance: OXYCODONE
     Dosage: 1.25 MG
     Route: 058
     Dates: start: 201901, end: 20190406
  46. RANITIDINE [Concomitant]
     Active Substance: RANITIDINE
     Dosage: 150 MG, BID
     Route: 065
     Dates: start: 20150825, end: 20150827
  47. RANITIDINE [Concomitant]
     Active Substance: RANITIDINE
     Dosage: 150 MG, BID
     Route: 048
     Dates: start: 20150805, end: 20150807
  48. RANITIDINE [Concomitant]
     Active Substance: RANITIDINE
     Dosage: 300 MG, QD
     Route: 048
     Dates: start: 20150805, end: 20150807
  49. RANITIDINE [Concomitant]
     Active Substance: RANITIDINE
     Dosage: 15 MG, QD
     Route: 048
     Dates: start: 20150825, end: 20150827
  50. SENNOSIDE B [Concomitant]
     Active Substance: SENNOSIDE B
     Indication: Constipation
     Dosage: 15 MG, BID
     Route: 048
     Dates: start: 20160809, end: 20190406
  51. SENNOSIDE B [Concomitant]
     Active Substance: SENNOSIDE B
     Dosage: 30 MG, QD
     Dates: start: 20160809, end: 20190406
  52. AMOXYCILLIN [AMOXICILLIN] [Concomitant]
     Dosage: 05 MG, QD
     Dates: start: 20150804, end: 20150810
  53. TICARCILLIN [Concomitant]
     Active Substance: TICARCILLIN
     Dosage: 125 MG, QD
     Route: 048
     Dates: start: 20150804, end: 20150810
  54. LACTULOSE [Concomitant]
     Active Substance: LACTULOSE
     Dosage: UNK UNK, QD(20 ML, M3   )
     Route: 048
     Dates: start: 201901, end: 20190406
  55. LEVETIRACETAM [Concomitant]
     Active Substance: LEVETIRACETAM
     Dosage: 500 MG, QD
     Route: 048
     Dates: start: 20180918, end: 20190406
  56. LEVETIRACETAM [Concomitant]
     Active Substance: LEVETIRACETAM
     Dosage: 1000 MG, QD
     Route: 048
     Dates: start: 20180918, end: 20190406
  57. POTASSIUM CHLORIDE [Concomitant]
     Active Substance: POTASSIUM CHLORIDE
     Dosage: 2 DF, QD
     Route: 048
     Dates: start: 20181120, end: 20181125
  58. POTASSIUM CHLORIDE [Concomitant]
     Active Substance: POTASSIUM CHLORIDE
     Dosage: UNK
     Route: 048
     Dates: start: 20180605, end: 20180607
  59. POTASSIUM CHLORIDE [Concomitant]
     Active Substance: POTASSIUM CHLORIDE
     Dosage: 4 UNK
     Route: 048
     Dates: start: 20181120, end: 20181125
  60. LANSOPRAZOLE [Concomitant]
     Active Substance: LANSOPRAZOLE
     Dosage: 30 MG
     Route: 048
     Dates: start: 20181002, end: 201908

REACTIONS (23)
  - Seizure [Recovered/Resolved]
  - Seizure [Recovered/Resolved]
  - Appendicitis [Recovered/Resolved]
  - Amnesia [Not Recovered/Not Resolved]
  - Anaphylactic reaction [Recovered/Resolved]
  - Axillary pain [Recovered/Resolved]
  - Catheter site haemorrhage [Recovered/Resolved]
  - Chest discomfort [Recovered/Resolved]
  - Constipation [Not Recovered/Not Resolved]
  - Dry skin [Recovered/Resolved]
  - Fatigue [Recovered/Resolved]
  - Memory impairment [Recovered/Resolved]
  - Insomnia [Not Recovered/Not Resolved]
  - Pruritus [Recovered/Resolved]
  - Ejection fraction decreased [Unknown]
  - Nail dystrophy [Recovered/Resolved]
  - Neuropathy peripheral [Recovered/Resolved]
  - Panic attack [Not Recovered/Not Resolved]
  - Lacrimation increased [Recovered/Resolved]
  - Hypokalaemia [Recovered/Resolved]
  - Hypokalaemia [Recovered/Resolved]
  - Dementia [Recovered/Resolved]
  - Diarrhoea [Recovered/Resolved]

NARRATIVE: CASE EVENT DATE: 20150716
